FAERS Safety Report 7574386-3 (Version None)
Quarter: 2011Q2

REPORT INFORMATION
  Report Type: 
  Country: None (occurrence: None)
  Receive Date: 20110627
  Receipt Date: 20110510
  Transmission Date: 20111010
  Serious: No
  Sender: FDA-Public Use
  Company Number: US-BAYER-2011-041608

PATIENT
  Sex: Female

DRUGS (2)
  1. IBUPROFEN [Concomitant]
     Dosage: 4 DF, UNK
     Route: 048
  2. ALEVE (CAPLET) [Suspect]
     Indication: PROCTALGIA
     Dosage: 1760 MG, UNK
     Route: 048

REACTIONS (1)
  - PROCTALGIA [None]
